FAERS Safety Report 25100682 (Version 2)
Quarter: 2025Q1

REPORT INFORMATION
  Report Type: Spontaneous
  Country: CA (occurrence: CA)
  Receive Date: 20250320
  Receipt Date: 20250321
  Transmission Date: 20250408
  Serious: Yes (Other)
  Sender: JOHNSON AND JOHNSON
  Company Number: CA-JNJFOC-20250340934

PATIENT
  Age: 22 Year
  Sex: Male

DRUGS (5)
  1. REMICADE [Suspect]
     Active Substance: INFLIXIMAB
     Indication: Crohn^s disease
     Route: 041
  2. ENTYVIO [Suspect]
     Active Substance: VEDOLIZUMAB
     Indication: Crohn^s disease
     Route: 042
  3. ENTYVIO [Suspect]
     Active Substance: VEDOLIZUMAB
     Route: 042
  4. METHOTREXATE [Suspect]
     Active Substance: METHOTREXATE
     Indication: Crohn^s disease
     Route: 065
  5. RINVOQ [Concomitant]
     Active Substance: UPADACITINIB

REACTIONS (12)
  - Crohn^s disease [Unknown]
  - Drug ineffective [Unknown]
  - Gastroenteritis viral [Unknown]
  - Feeling cold [Unknown]
  - Asthenia [Unknown]
  - Gait disturbance [Unknown]
  - Gastrointestinal inflammation [Unknown]
  - Muscle atrophy [Unknown]
  - Musculoskeletal stiffness [Unknown]
  - Off label use [Unknown]
  - Sitting disability [Unknown]
  - Weight decreased [Unknown]
